FAERS Safety Report 6655241-X (Version None)
Quarter: 2010Q1

REPORT INFORMATION
  Report Type: 
  Country: None (occurrence: None)
  Receive Date: 20100319
  Receipt Date: 20090922
  Transmission Date: 20100710
  Serious: Yes (Other)
  Sender: FDA-Public Use
  Company Number: 2009SP026502

PATIENT
  Age: 58 Year
  Sex: Female
  Weight: 54.4316 kg

DRUGS (7)
  1. PEG-INTRON [Suspect]
     Indication: HEPATITIS C
     Dosage: 1000 MCG; QW; SC
     Route: 058
     Dates: start: 20080621, end: 20090501
  2. RIBAVIRIN [Suspect]
     Indication: HEPATITIS C
     Dosage: 1000 MCG; QD; PO
     Route: 048
     Dates: start: 20080621, end: 20090501
  3. IRON [Concomitant]
  4. CENTRUM SILVER [Concomitant]
  5. TRIAMTERENE AND HYDROCHLOROTHIAZIDE [Concomitant]
  6. HYDROXYZINE [Concomitant]
  7. MECLIZINE [Concomitant]

REACTIONS (3)
  - ANAEMIA [None]
  - DECREASED APPETITE [None]
  - DEPRESSION [None]
